FAERS Safety Report 12700618 (Version 1)
Quarter: 2016Q3

REPORT INFORMATION
  Report Type: Spontaneous
  Country: US (occurrence: US)
  Receive Date: 20160830
  Receipt Date: 20160830
  Transmission Date: 20161109
  Serious: No
  Sender: FDA-Public Use
  Company Number: GXBR2016US002335

PATIENT
  Sex: Female

DRUGS (1)
  1. GLATOPA [Suspect]
     Active Substance: GLATIRAMER ACETATE
     Indication: PRODUCT USED FOR UNKNOWN INDICATION
     Dosage: 20 MG/ML, UNK
     Route: 065

REACTIONS (6)
  - Retching [Unknown]
  - Hypersensitivity [Unknown]
  - Diarrhoea [Unknown]
  - Dyspnoea [Unknown]
  - Flatulence [Unknown]
  - Dizziness [Unknown]
